FAERS Safety Report 17790341 (Version 1)
Quarter: 2020Q2

REPORT INFORMATION
  Report Type: Spontaneous
  Country: US (occurrence: US)
  Receive Date: 20200514
  Receipt Date: 20200514
  Transmission Date: 20200714
  Serious: Yes (Other)
  Sender: FDA-Public Use
  Company Number: None

PATIENT
  Age: 63 Year
  Sex: Male
  Weight: 105.8 kg

DRUGS (17)
  1. VASOPRESSIN. [Concomitant]
     Active Substance: VASOPRESSIN
     Dates: start: 20200514
  2. BUMETANIDE. [Concomitant]
     Active Substance: BUMETANIDE
     Dates: start: 20200509, end: 20200510
  3. ETOMIDATE. [Concomitant]
     Active Substance: ETOMIDATE
     Dates: start: 20200507, end: 20200507
  4. MIDAZOLAM. [Concomitant]
     Active Substance: MIDAZOLAM
     Dates: start: 20200507
  5. EPOPROSTENOL INHALATION [Concomitant]
     Dates: start: 20200507
  6. GABAPENTIN. [Concomitant]
     Active Substance: GABAPENTIN
     Dates: start: 20200505, end: 20200508
  7. PROPOFOL. [Concomitant]
     Active Substance: PROPOFOL
     Dates: start: 20200507
  8. FUROSEMIDE. [Suspect]
     Active Substance: FUROSEMIDE
     Indication: RESPIRATORY FAILURE
     Route: 040
     Dates: start: 20200505, end: 20200507
  9. CALCIUM GLUCONATE. [Concomitant]
     Active Substance: CALCIUM GLUCONATE
     Dates: start: 20200512, end: 20200512
  10. MARAVIROC [Concomitant]
     Active Substance: MARAVIROC
     Dates: start: 20200505, end: 20200508
  11. DOCUSATE [Concomitant]
     Active Substance: DOCUSATE
     Dates: start: 20200510
  12. FENTANYL. [Concomitant]
     Active Substance: FENTANYL
     Dates: start: 20200507
  13. NOREPINEPHRINE. [Concomitant]
     Active Substance: NOREPINEPHRINE
     Dates: start: 20200512
  14. VECURONIUM [Concomitant]
     Active Substance: VECURONIUM BROMIDE
     Dates: start: 20200511, end: 20200513
  15. LORAZEPAM. [Concomitant]
     Active Substance: LORAZEPAM
     Dates: start: 20200507, end: 20200507
  16. REMDESIVIR. [Suspect]
     Active Substance: REMDESIVIR
     Indication: COVID-19
     Dosage: ?          OTHER FREQUENCY:ONCE;?
     Route: 041
     Dates: start: 20200506, end: 20200508
  17. METHYLPREDNISOLONE. [Concomitant]
     Active Substance: METHYLPREDNISOLONE
     Dates: start: 20200505

REACTIONS (3)
  - Blood creatinine increased [None]
  - Product label confusion [None]
  - Product preparation error [None]

NARRATIVE: CASE EVENT DATE: 20200508
